FAERS Safety Report 4466758-0 (Version None)
Quarter: 2004Q3

REPORT INFORMATION
  Report Type: 
  Country: None (occurrence: None)
  Receive Date: 20040930
  Receipt Date: 20040915
  Transmission Date: 20050211
  Serious: Yes (Other)
  Sender: FDA-Public Use
  Company Number: A-US2004-07421

PATIENT
  Age: 50 Year
  Sex: Female

DRUGS (9)
  1. TRACLEER [Suspect]
     Indication: PULMONARY HYPERTENSION
     Dosage: ORAL
     Route: 048
     Dates: start: 20020201
  2. COUMADIN [Concomitant]
  3. NORVASC [Concomitant]
  4. PROTONIX [Concomitant]
  5. ALDACTONE [Concomitant]
  6. POTASSIUM (POTASSIUM) [Concomitant]
  7. FLOLAN [Concomitant]
  8. IRON (IRON) [Concomitant]
  9. HYDROCHLOROTHIAZIDE [Concomitant]

REACTIONS (3)
  - CONNECTIVE TISSUE DISORDER [None]
  - GASTROINTESTINAL HAEMORRHAGE [None]
  - PANCYTOPENIA [None]
